FAERS Safety Report 18963835 (Version 3)
Quarter: 2022Q3

REPORT INFORMATION
  Report Type: Spontaneous
  Country: US (occurrence: US)
  Receive Date: 20210303
  Receipt Date: 20220810
  Transmission Date: 20221027
  Serious: No
  Sender: FDA-Public Use
  Company Number: US-BIOGEN-2021BI00977132

PATIENT
  Sex: Female

DRUGS (18)
  1. VUMERITY [Suspect]
     Active Substance: DIROXIMEL FUMARATE
     Indication: Multiple sclerosis
     Dosage: STARTING DOSE
     Route: 050
     Dates: start: 20210104, end: 20210110
  2. VUMERITY [Suspect]
     Active Substance: DIROXIMEL FUMARATE
     Dosage: MAINTENANCE DOSE
     Route: 050
     Dates: start: 20210111
  3. VUMERITY [Suspect]
     Active Substance: DIROXIMEL FUMARATE
     Route: 050
     Dates: start: 20210104, end: 2022
  4. ASPIRIN [Concomitant]
     Active Substance: ASPIRIN
     Route: 050
  5. IPRATROPIUM BROMIDE [Concomitant]
     Active Substance: IPRATROPIUM BROMIDE
     Route: 050
  6. METHOCARBAMOL [Concomitant]
     Active Substance: METHOCARBAMOL
     Route: 050
  7. DICLOFENAC SODIUM [Concomitant]
     Active Substance: DICLOFENAC SODIUM
     Route: 050
  8. BENADRYL [Concomitant]
     Active Substance: DIPHENHYDRAMINE HYDROCHLORIDE
     Route: 050
  9. LISINOPRIL [Concomitant]
     Active Substance: LISINOPRIL
     Route: 050
  10. TOPIRAMATE [Concomitant]
     Active Substance: TOPIRAMATE
     Route: 050
  11. OMEPRAZOLE [Concomitant]
     Active Substance: OMEPRAZOLE
     Route: 050
  12. LORAZEPAM [Concomitant]
     Active Substance: LORAZEPAM
     Route: 050
  13. ONDANSETRON HCL [Concomitant]
     Active Substance: ONDANSETRON HYDROCHLORIDE
     Route: 050
  14. PERCOCET [Concomitant]
     Active Substance: ACETAMINOPHEN\OXYCODONE HYDROCHLORIDE
     Route: 050
  15. LEVOTHYROXINE SODIUM [Concomitant]
     Active Substance: LEVOTHYROXINE SODIUM
     Route: 050
  16. TRAZODONE HYDROCHLORIDE [Concomitant]
     Active Substance: TRAZODONE HYDROCHLORIDE
     Route: 050
  17. MECLIZINE HYDROCHLORIDE [Concomitant]
     Active Substance: MECLIZINE HYDROCHLORIDE
     Route: 050
  18. NEURONTIN [Concomitant]
     Active Substance: GABAPENTIN
     Route: 050

REACTIONS (10)
  - Product dose omission issue [Unknown]
  - Pain [Not Recovered/Not Resolved]
  - Multiple sclerosis [Not Recovered/Not Resolved]
  - Visual acuity reduced [Unknown]
  - Back pain [Not Recovered/Not Resolved]
  - Fatigue [Not Recovered/Not Resolved]
  - Pain in extremity [Not Recovered/Not Resolved]
  - Loss of control of legs [Not Recovered/Not Resolved]
  - Hemiparesis [Not Recovered/Not Resolved]
  - Malaise [Not Recovered/Not Resolved]

NARRATIVE: CASE EVENT DATE: 20210101
